FAERS Safety Report 10201695 (Version 1)
Quarter: 2014Q2

REPORT INFORMATION
  Report Type: Spontaneous
  Country: DE (occurrence: DE)
  Receive Date: 20140528
  Receipt Date: 20140528
  Transmission Date: 20141212
  Serious: Yes (Congenital Anomaly, Other)
  Sender: FDA-Public Use
  Company Number: DE-JNJFOC-20140512930

PATIENT
  Sex: Male
  Weight: 2.8 kg

DRUGS (2)
  1. REMICADE [Suspect]
     Indication: COLITIS ULCERATIVE
     Dosage: GESTATIONAL WEEK 3, 10, 17, 24, 32
     Route: 064
  2. FEMIBION [Suspect]
     Indication: PROPHYLAXIS OF NEURAL TUBE DEFECT
     Route: 064
     Dates: start: 20130209, end: 20131104

REACTIONS (5)
  - Hypospadias [Not Recovered/Not Resolved]
  - Hydrocele [Unknown]
  - Urachal abnormality [Recovered/Resolved]
  - Infection [Unknown]
  - Foetal exposure during pregnancy [Unknown]
